FAERS Safety Report 15505395 (Version 1)
Quarter: 2018Q4

REPORT INFORMATION
  Report Type: Spontaneous
  Country: TH (occurrence: TH)
  Receive Date: 20181016
  Receipt Date: 20181016
  Transmission Date: 20190205
  Serious: Yes (Hospitalization, Other)
  Sender: FDA-Public Use
  Company Number: TH-ZYDUS-029143

PATIENT
  Age: 38 Year
  Sex: Female

DRUGS (7)
  1. PREDNISOLONE. [Suspect]
     Active Substance: PREDNISOLONE
     Indication: SYSTEMIC LUPUS ERYTHEMATOSUS
     Route: 065
  2. AZATHIOPRINE. [Suspect]
     Active Substance: AZATHIOPRINE
     Indication: SYSTEMIC LUPUS ERYTHEMATOSUS
     Route: 065
  3. AZATHIOPRINE. [Suspect]
     Active Substance: AZATHIOPRINE
     Indication: SYSTEMIC LUPUS ERYTHEMATOSUS
     Route: 065
  4. PYRIDOSTIGMINE [Concomitant]
     Active Substance: PYRIDOSTIGMINE
     Indication: MYASTHENIA GRAVIS
     Route: 065
     Dates: start: 201509, end: 201510
  5. HYDROXYCHLOROQUINE [Suspect]
     Active Substance: HYDROXYCHLOROQUINE
     Indication: SYSTEMIC LUPUS ERYTHEMATOSUS
     Route: 065
  6. PREDNISOLONE. [Suspect]
     Active Substance: PREDNISOLONE
     Indication: SYSTEMIC LUPUS ERYTHEMATOSUS
     Route: 065
  7. PREDNISOLONE. [Suspect]
     Active Substance: PREDNISOLONE
     Indication: SYSTEMIC LUPUS ERYTHEMATOSUS
     Route: 065

REACTIONS (35)
  - Lymphopenia [Recovered/Resolved]
  - Diarrhoea [Recovered/Resolved]
  - Decreased appetite [Recovered/Resolved]
  - Abdominal distension [Recovered/Resolved]
  - Rash vesicular [Recovered/Resolved]
  - Papule [Recovered/Resolved]
  - Myositis [Recovered/Resolved]
  - Varicella zoster virus infection [Recovered/Resolved]
  - Abdominal pain [Recovered/Resolved]
  - Skin plaque [Recovered/Resolved]
  - Cytomegalovirus syndrome [Recovered/Resolved]
  - Chest pain [Recovered/Resolved]
  - Dyspnoea [Recovered/Resolved]
  - Pleural effusion [Recovered/Resolved]
  - Pericardial effusion [Recovered/Resolved]
  - Muscular weakness [Recovered/Resolved]
  - Cachexia [Recovered/Resolved]
  - Conjunctival discolouration [Recovered/Resolved]
  - Generalised erythema [Recovered/Resolved]
  - Macule [Recovered/Resolved]
  - Eyelid ptosis [Recovered/Resolved]
  - Muscle atrophy [Recovered/Resolved]
  - Skin swelling [Recovered/Resolved]
  - Cytomegalovirus viraemia [Recovered/Resolved]
  - Pyrexia [Recovered/Resolved]
  - Enteritis [Recovered/Resolved]
  - Scab [Recovered/Resolved]
  - Hypokinesia [Recovered/Resolved]
  - Lupus myocarditis [Recovered/Resolved]
  - Panniculitis [Recovered/Resolved]
  - Legionella infection [Recovered/Resolved]
  - Abdominal tenderness [Recovered/Resolved]
  - Left ventricular dysfunction [Recovered/Resolved]
  - Cytomegalovirus infection [Recovered/Resolved]
  - Weight decreased [Recovered/Resolved]
